FAERS Safety Report 6959317-9 (Version None)
Quarter: 2010Q3

REPORT INFORMATION
  Report Type: 
  Country: None (occurrence: None)
  Receive Date: 20100831
  Receipt Date: 20100819
  Transmission Date: 20110219
  Serious: Yes (Other)
  Sender: FDA-Public Use
  Company Number: BR-GENENTECH-305719

PATIENT
  Sex: Female
  Weight: 53 kg

DRUGS (5)
  1. RITUXIMAB [Suspect]
     Indication: RHEUMATOID ARTHRITIS
     Dosage: 1000 MG, UNK
     Route: 065
     Dates: start: 20020101
  2. RITUXIMAB [Suspect]
     Dosage: 1000 MG, UNK
     Route: 065
     Dates: start: 20090501, end: 20100801
  3. SYNTHROID [Concomitant]
     Indication: PRODUCT USED FOR UNKNOWN INDICATION
     Dosage: 75 A?G, UNK
  4. METHOTREXATE [Concomitant]
     Indication: PRODUCT USED FOR UNKNOWN INDICATION
     Dosage: 15 MG, UNK
  5. METHOTREXATE [Concomitant]
     Dosage: 15 MG, UNK

REACTIONS (1)
  - THYROID DISORDER [None]
